FAERS Safety Report 20670139 (Version 1)
Quarter: 2022Q2

REPORT INFORMATION
  Report Type: Spontaneous
  Country: US (occurrence: None)
  Receive Date: 20220401
  Receipt Date: 20220401
  Transmission Date: 20220721
  Serious: Yes (Hospitalization)
  Sender: FDA-Public Use
  Company Number: None

PATIENT
  Sex: Female

DRUGS (1)
  1. NIVESTYM [Suspect]
     Active Substance: FILGRASTIM-AAFI
     Indication: Renal transplant
     Dosage: OTHER STRENGTH : 300/0.5 UG/ML;?FREQUENCY : WEEKLY;?
     Route: 058
     Dates: start: 202105

REACTIONS (2)
  - Kidney transplant rejection [None]
  - Blood pressure fluctuation [None]

NARRATIVE: CASE EVENT DATE: 20220201
